FAERS Safety Report 11886333 (Version 3)
Quarter: 2016Q1

REPORT INFORMATION
  Report Type: Spontaneous
  Country: US (occurrence: US)
  Receive Date: 20160104
  Receipt Date: 20160330
  Transmission Date: 20160526
  Serious: Yes (Hospitalization, Other)
  Sender: FDA-Public Use
  Company Number: US-ACTELION-A-NJ2015-126255

PATIENT
  Age: 81 Year
  Sex: Female

DRUGS (1)
  1. OPSUMIT [Suspect]
     Active Substance: MACITENTAN
     Indication: PULMONARY HYPERTENSION
     Dosage: 10 MG, QD
     Route: 048
     Dates: start: 20151005

REACTIONS (11)
  - Pneumonia [Unknown]
  - Platelet transfusion [Unknown]
  - Haemoglobin decreased [Unknown]
  - Platelet count decreased [Unknown]
  - Leukaemia [Unknown]
  - Red blood cell count decreased [Unknown]
  - Transfusion [Unknown]
  - Dyspnoea [Unknown]
  - Tachycardia [Unknown]
  - Anaemia [Unknown]
  - Sleep apnoea syndrome [Unknown]
